FAERS Safety Report 5256769-X (Version None)
Quarter: 2007Q1

REPORT INFORMATION
  Report Type: 
  Country: None (occurrence: None)
  Receive Date: 20070306
  Receipt Date: 20070227
  Transmission Date: 20070707
  Serious: Yes (Other)
  Sender: FDA-Public Use
  Company Number: GB-PFIZER INC-2007016008

PATIENT
  Sex: Female

DRUGS (7)
  1. PREDNISONE [Suspect]
     Indication: CHRONIC LYMPHOCYTIC LEUKAEMIA
  2. CYCLOPHOSPHAMIDE [Suspect]
     Indication: CHRONIC LYMPHOCYTIC LEUKAEMIA
  3. DOXORUBICIN HYDROCHLORIDE POWDER, STERILE [Suspect]
     Indication: CHRONIC LYMPHOCYTIC LEUKAEMIA
  4. VINCRISTINE [Suspect]
     Indication: CHRONIC LYMPHOCYTIC LEUKAEMIA
  5. CHLORAMBUCIL [Suspect]
     Indication: CHRONIC LYMPHOCYTIC LEUKAEMIA
  6. FLUDARABINE [Suspect]
     Indication: CHRONIC LYMPHOCYTIC LEUKAEMIA
  7. RITUXIMAB [Suspect]
     Dosage: DAILY DOSE:375MG/M2

REACTIONS (1)
  - NEUTROPENIA [None]
